FAERS Safety Report 22534346 (Version 1)
Quarter: 2023Q2

REPORT INFORMATION
  Report Type: Spontaneous
  Country: FR (occurrence: FR)
  Receive Date: 20230608
  Receipt Date: 20230608
  Transmission Date: 20230721
  Serious: Yes (Other)
  Sender: FDA-Public Use
  Company Number: None

PATIENT
  Age: 74 Year
  Sex: Female

DRUGS (1)
  1. CHLORHEXIDINE GLUCONATE [Suspect]
     Active Substance: CHLORHEXIDINE GLUCONATE
     Indication: Infection prophylaxis
     Dosage: CHLORHEXIDINE NON DEXCEL (DOSISEPTINE)
     Route: 031
     Dates: start: 20230424, end: 20230424

REACTIONS (2)
  - Ocular hyperaemia [Recovered/Resolved]
  - Amaurosis [Recovered/Resolved]

NARRATIVE: CASE EVENT DATE: 20230424
